FAERS Safety Report 11878371 (Version 2)
Quarter: 2015Q4

REPORT INFORMATION
  Report Type: Report from Study
  Country: GB (occurrence: GB)
  Receive Date: 20151230
  Receipt Date: 20151230
  Transmission Date: 20160305
  Serious: Yes (Hospitalization)
  Sender: FDA-Public Use
  Company Number: GB-ACTAVIS-2015-28161

PATIENT
  Age: 70 Year
  Sex: Male
  Weight: 93 kg

DRUGS (4)
  1. MORPHINE SULFATE (AELLC) [Suspect]
     Active Substance: MORPHINE SULFATE
     Dosage: 45 MG, UNKNOWN
     Route: 065
     Dates: start: 201411
  2. OXYCODONE HYDROCHLORIDE-APAP (WATSON LABORATORIES) [Suspect]
     Active Substance: ACETAMINOPHEN\OXYCODONE\OXYCODONE HYDROCHLORIDE
     Indication: PAIN
     Dosage: 45 MG, UNKNOWN
     Route: 065
     Dates: start: 2014, end: 20150722
  3. MORPHINE SULFATE (AELLC) [Suspect]
     Active Substance: MORPHINE SULFATE
     Dosage: UNK
     Route: 065
     Dates: start: 20150708
  4. MORPHINE SULFATE (AELLC) [Suspect]
     Active Substance: MORPHINE SULFATE
     Indication: ABDOMINAL PAIN
     Dosage: UNK
     Route: 065
     Dates: start: 20150703

REACTIONS (7)
  - Delirium [Recovered/Resolved]
  - Delirium [Recovered/Resolved]
  - Somnolence [Unknown]
  - Decreased appetite [Unknown]
  - Lethargy [Unknown]
  - Toxicity to various agents [Unknown]
  - Hallucination [Unknown]

NARRATIVE: CASE EVENT DATE: 20150707
